FAERS Safety Report 18559400 (Version 2)
Quarter: 2021Q1

REPORT INFORMATION
  Report Type: Report from Study
  Country: CO (occurrence: CO)
  Receive Date: 20201130
  Receipt Date: 20210107
  Transmission Date: 20210419
  Serious: Yes (Other)
  Sender: FDA-Public Use
  Company Number: NVSC2020CO315209

PATIENT
  Sex: Female
  Weight: 57 kg

DRUGS (4)
  1. REVOLADE [Suspect]
     Active Substance: ELTROMBOPAG OLAMINE
     Indication: IMMUNE THROMBOCYTOPENIA
     Dosage: UNK, QD
     Route: 048
     Dates: start: 202007, end: 202009
  2. PREDNISOLONE. [Concomitant]
     Active Substance: PREDNISOLONE
     Indication: PRODUCT USED FOR UNKNOWN INDICATION
     Dosage: UNK, QOD (EVERY OTHER DAY (STARTED 4 MOMTHS AGO))
     Route: 048
  3. AZATHIOPRINE. [Concomitant]
     Active Substance: AZATHIOPRINE
     Indication: PRODUCT USED FOR UNKNOWN INDICATION
     Dosage: UNK, QD (STARTED TWO MONTHS AGO)
     Route: 048
  4. METFORMIN [Concomitant]
     Active Substance: METFORMIN HYDROCHLORIDE
     Indication: DIABETES MELLITUS
     Dosage: 800 MG, QD (STARTED A YEAR AGO)
     Route: 048

REACTIONS (3)
  - Platelet count increased [Recovering/Resolving]
  - Platelet count decreased [Recovering/Resolving]
  - Systemic lupus erythematosus [Unknown]
